FAERS Safety Report 5831518-2 (Version None)
Quarter: 2008Q3

REPORT INFORMATION
  Report Type: 
  Country: None (occurrence: None)
  Receive Date: 20080730
  Receipt Date: 20080721
  Transmission Date: 20090109
  Serious: Yes (Other)
  Sender: FDA-Public Use
  Company Number: 2008AP001781

PATIENT

DRUGS (1)
  1. CETIRIZINE HCL [Suspect]

REACTIONS (1)
  - ANAPHYLACTIC SHOCK [None]
